FAERS Safety Report 7908901-4 (Version None)
Quarter: 2011Q4

REPORT INFORMATION
  Report Type: 
  Country: None (occurrence: None)
  Receive Date: 20111111
  Receipt Date: 20111102
  Transmission Date: 20120403
  Serious: Yes (Other)
  Sender: FDA-Public Use
  Company Number: US-BRISTOL-MYERS SQUIBB COMPANY-16211336

PATIENT
  Age: 67 Year
  Sex: Female
  Weight: 55 kg

DRUGS (3)
  1. DILAUDID [Concomitant]
     Indication: PANCREATITIS
  2. ORENCIA [Suspect]
     Indication: RHEUMATOID ARTHRITIS
     Route: 042
  3. METHADONE HCL [Concomitant]
     Indication: PAIN

REACTIONS (3)
  - BREAST DISORDER [None]
  - DYSPNOEA [None]
  - CHEST DISCOMFORT [None]
